FAERS Safety Report 9700965 (Version 3)
Quarter: 2014Q1

REPORT INFORMATION
  Report Type: Report from Study
  Country: US (occurrence: US)
  Receive Date: 20131121
  Receipt Date: 20140128
  Transmission Date: 20141002
  Serious: Yes (Hospitalization, Other)
  Sender: FDA-Public Use
  Company Number: US-ASTELLAS-2013US011901

PATIENT
  Age: 27 Year
  Sex: Male
  Weight: 72 kg

DRUGS (7)
  1. ERLOTINIB TABLET [Suspect]
     Indication: ACUTE MYELOID LEUKAEMIA
     Dosage: 150 MG, UID/QD
     Route: 048
     Dates: start: 20131024, end: 20131111
  2. ERLOTINIB TABLET [Suspect]
     Dosage: 150 MG, UID/QD
     Route: 048
     Dates: start: 20131115
  3. ERLOTINIB TABLET [Suspect]
     Dosage: 150 MG, UID/QD
     Route: 048
     Dates: start: 20131121, end: 20131125
  4. HYDREA [Suspect]
     Indication: TUMOUR LYSIS SYNDROME
     Dosage: 2 G, BID
     Route: 065
     Dates: start: 20131014, end: 20131112
  5. HYDREA [Suspect]
     Dosage: 2 G, UID/QD
     Route: 065
     Dates: start: 20131113, end: 20131113
  6. KEPPRA [Concomitant]
     Indication: CONVULSION
     Dosage: 1000 MG, BID
     Route: 048
  7. TOPAMAX [Concomitant]
     Indication: CONVULSION
     Dosage: 50 MG, UID/QD
     Route: 048

REACTIONS (21)
  - Off label use [Unknown]
  - Atelectasis [Recovering/Resolving]
  - Thrombocytopenia [Unknown]
  - Anaemia [Unknown]
  - Dehydration [Recovered/Resolved]
  - Dermatitis [Unknown]
  - Malignant neoplasm progression [Unknown]
  - Pneumonia [Recovering/Resolving]
  - Enterococcal bacteraemia [Recovered/Resolved]
  - Anxiety [Unknown]
  - Myalgia [Unknown]
  - Dizziness [Unknown]
  - Somnolence [Unknown]
  - Diarrhoea [Unknown]
  - Nausea [Unknown]
  - Decreased appetite [Unknown]
  - Back pain [Unknown]
  - Asthenia [Unknown]
  - Fatigue [Unknown]
  - Febrile neutropenia [Unknown]
  - Hypotension [Recovered/Resolved]
